FAERS Safety Report 7481577-9 (Version None)
Quarter: 2011Q2

REPORT INFORMATION
  Report Type: 
  Country: None (occurrence: None)
  Receive Date: 20110516
  Receipt Date: 20110510
  Transmission Date: 20111010
  Serious: Yes (Other)
  Sender: FDA-Public Use
  Company Number: B0719224A

PATIENT
  Sex: Male
  Weight: 58 kg

DRUGS (1)
  1. NIQUITIN MINI LOZENGES 4MG [Suspect]
     Route: 065
     Dates: start: 20110414, end: 20110414

REACTIONS (5)
  - TRACHEAL PAIN [None]
  - ASPHYXIA [None]
  - VERTIGO [None]
  - SALIVARY HYPERSECRETION [None]
  - PALPITATIONS [None]
